FAERS Safety Report 21555416 (Version 1)
Quarter: 2022Q4

REPORT INFORMATION
  Report Type: Spontaneous
  Country: US (occurrence: US)
  Receive Date: 20221104
  Receipt Date: 20221104
  Transmission Date: 20230112
  Serious: Yes (Other)
  Sender: FDA-Public Use
  Company Number: US-009507513-2210USA010580

PATIENT
  Sex: Male

DRUGS (1)
  1. KEYTRUDA [Suspect]
     Active Substance: PEMBROLIZUMAB
     Indication: Non-small cell lung cancer
     Dosage: UNK

REACTIONS (5)
  - Malignant neoplasm progression [Unknown]
  - Radiotherapy [Unknown]
  - Radiation necrosis [Unknown]
  - Product use issue [Unknown]
  - Product use issue [Unknown]
